FAERS Safety Report 16534067 (Version 1)
Quarter: 2019Q3

REPORT INFORMATION
  Report Type: Spontaneous
  Country: US (occurrence: US)
  Receive Date: 20190703
  Receipt Date: 20190703
  Transmission Date: 20191004
  Serious: No
  Sender: FDA-Public Use
  Company Number: None

PATIENT
  Age: 35 Year
  Sex: Female
  Weight: 49.5 kg

DRUGS (3)
  1. IRON [Concomitant]
     Active Substance: IRON
  2. COFFEE [Concomitant]
     Active Substance: ARABICA COFFEE BEAN\COFFEE BEAN
  3. SCOPOLAMINE PATCH [Suspect]
     Active Substance: SCOPOLAMINE
     Indication: PROCEDURAL NAUSEA
     Dosage: ?          OTHER FREQUENCY:SKIN PATCH;?
     Route: 062
     Dates: start: 20190625, end: 20190627

REACTIONS (7)
  - Nausea [None]
  - Dizziness [None]
  - Cognitive disorder [None]
  - Confusional state [None]
  - Photosensitivity reaction [None]
  - Fatigue [None]
  - Mydriasis [None]

NARRATIVE: CASE EVENT DATE: 20190626
